FAERS Safety Report 9513246 (Version 2)
Quarter: 2013Q3

REPORT INFORMATION
  Report Type: Spontaneous
  Country: US (occurrence: US)
  Receive Date: 20130910
  Receipt Date: 20130920
  Transmission Date: 20140515
  Serious: Yes (Other)
  Sender: FDA-Public Use
  Company Number: CHPA2013US013940

PATIENT
  Age: 42 Year
  Sex: Male

DRUGS (1)
  1. VOLTAREN GEL [Suspect]
     Indication: TENDONITIS
     Dosage: 2 G, QID
     Route: 061
     Dates: start: 20130817, end: 20130907

REACTIONS (3)
  - Muscle atrophy [Unknown]
  - Drug administered at inappropriate site [Unknown]
  - Off label use [Unknown]
